FAERS Safety Report 14394302 (Version 4)
Quarter: 2018Q2

REPORT INFORMATION
  Report Type: Spontaneous
  Country: US (occurrence: US)
  Receive Date: 20180116
  Receipt Date: 20180504
  Transmission Date: 20180711
  Serious: Yes (Other)
  Sender: FDA-Public Use
  Company Number: US-BAUSCH-BL-2018-000968

PATIENT
  Age: 66 Year
  Sex: Male
  Weight: 80.4 kg

DRUGS (14)
  1. NORTHERA [Suspect]
     Active Substance: DROXIDOPA
     Dosage: 400 MG 1600
     Route: 065
     Dates: start: 20171213, end: 20171224
  2. THERMOTABS [Concomitant]
     Indication: AUTONOMIC FAILURE SYNDROME
     Dosage: AS NEEDED
     Route: 048
     Dates: start: 20161025
  3. NORTHERA [Suspect]
     Active Substance: DROXIDOPA
     Dosage: 400 MG AM
     Route: 048
  4. NORTHERA [Suspect]
     Active Substance: DROXIDOPA
     Dosage: 400 MG NOON
     Route: 048
  5. MIDODRINE [Concomitant]
     Active Substance: MIDODRINE
     Indication: AUTONOMIC FAILURE SYNDROME
  6. PYRIDOSTIGMINE [Suspect]
     Active Substance: PYRIDOSTIGMINE
     Indication: PRODUCT USED FOR UNKNOWN INDICATION
     Dosage: 60 MG 8.00 AND NOON
     Route: 065
  7. NORTHERA [Suspect]
     Active Substance: DROXIDOPA
     Indication: ORTHOSTATIC HYPOTENSION
     Dosage: SIX 100MG CAPSULES IN AM, SIX 100MG CAPSULES AT NOON AND 400 MG IN PM FOR FEW DAYS
     Route: 048
  8. NORTHERA [Suspect]
     Active Substance: DROXIDOPA
     Dosage: 600 MG NOON
     Route: 065
     Dates: start: 20171213, end: 20171224
  9. VITAMIN B12 [Concomitant]
     Active Substance: CYANOCOBALAMIN
     Indication: VITAMIN SUPPLEMENTATION
     Route: 048
     Dates: start: 20170508
  10. FLUDROCORTISONE [Concomitant]
     Active Substance: FLUDROCORTISONE
     Indication: AUTONOMIC FAILURE SYNDROME
     Dosage: 0.1 MG AT AM AND 0.1 MG AT NOON
     Route: 048
  11. NORTHERA [Suspect]
     Active Substance: DROXIDOPA
     Indication: AUTONOMIC NERVOUS SYSTEM IMBALANCE
     Dosage: FOUR 100MG CAPSULES IN AM, FOUR 100MG CAPSULES AT NOON AND 200 MG IN PM
     Route: 048
     Dates: start: 20171213, end: 20171224
  12. NORTHERA [Suspect]
     Active Substance: DROXIDOPA
     Dosage: 600 MG 0800
     Route: 065
     Dates: start: 20171213, end: 20171224
  13. MELATONIN [Concomitant]
     Active Substance: MELATONIN
     Indication: SLEEP DISORDER
     Route: 048
  14. NORTHERA [Suspect]
     Active Substance: DROXIDOPA
     Dosage: 200 MG PM
     Route: 048

REACTIONS (14)
  - Pyrexia [Recovered/Resolved]
  - Seizure [Recovered/Resolved]
  - Drug interaction [Recovered/Resolved]
  - Confusional state [Unknown]
  - Ocular discomfort [Recovered/Resolved]
  - Abdominal pain upper [Recovered/Resolved]
  - Tremor [Recovered/Resolved]
  - Viral infection [Unknown]
  - Eye pain [Unknown]
  - Abdominal discomfort [Recovered/Resolved]
  - Dysarthria [Recovered/Resolved]
  - Blood pressure increased [Recovered/Resolved]
  - Nausea [Recovered/Resolved]
  - Headache [Recovered/Resolved]

NARRATIVE: CASE EVENT DATE: 201712
